FAERS Safety Report 9526317 (Version 1)
Quarter: 2013Q1

REPORT INFORMATION
  Report Type: Spontaneous
  Country: US (occurrence: None)
  Receive Date: 20130305
  Receipt Date: 20130305
  Transmission Date: 20140127
  Serious: Yes (Hospitalization)
  Sender: FDA-Public Use
  Company Number: 163-21880-12020941

PATIENT
  Age: 73 Year
  Sex: Female

DRUGS (1)
  1. REVLIMID (LENALIDOMIDE) (15 MILLIGRAM, CAPSULES) [Suspect]
     Indication: PLASMA CELL MYELOMA
     Dosage: DAILY X 14 DAYS ON, 7 DAYS OFF
     Route: 048
     Dates: start: 20111219, end: 20120220

REACTIONS (1)
  - Malaise [None]
